FAERS Safety Report 8641466 (Version 2)
Quarter: 2014Q1

REPORT INFORMATION
  Report Type: Spontaneous
  Country: US (occurrence: None)
  Receive Date: 20120323
  Receipt Date: 20140306
  Transmission Date: 20141002
  Serious: Yes (Hospitalization, Other)
  Sender: FDA-Public Use
  Company Number: 163-21880-11091506

PATIENT
  Age: 83 Year
  Sex: Female
  Weight: 67.59 kg

DRUGS (7)
  1. REVLIMID (LENALIDOMIDE) (25 MILLIGRAM, CAPSULES) [Suspect]
     Indication: PLASMA CELL MYELOMA
     Dosage: 25 MG, DAILY X 21 DAYS, PO
     Route: 048
     Dates: start: 20100112, end: 20110828
  2. AMLODIPINE [Concomitant]
  3. BABY ASPIRIN (ACETYLSALICYLIC ACID) [Concomitant]
  4. DEXAMETHASONE [Concomitant]
  5. LISINOPRIL [Concomitant]
  6. MULTIVITAMINS [Concomitant]
  7. WARFARIN [Concomitant]

REACTIONS (3)
  - Pulmonary embolism [None]
  - Cough [None]
  - Dry throat [None]
